FAERS Safety Report 7750565-7 (Version None)
Quarter: 2011Q3

REPORT INFORMATION
  Report Type: 
  Country: None (occurrence: None)
  Receive Date: 20110914
  Receipt Date: 20110909
  Transmission Date: 20111222
  Serious: Yes (Life-Threatening)
  Sender: FDA-Public Use
  Company Number: IT-MERCK-1109ITA00014

PATIENT
  Age: 57 Year
  Sex: Female

DRUGS (2)
  1. NADROPARIN CALCIUM [Concomitant]
     Indication: THROMBOSIS PROPHYLAXIS
     Route: 058
     Dates: start: 20110301, end: 20110901
  2. EMEND [Suspect]
     Indication: PROPHYLAXIS OF NAUSEA AND VOMITING
     Route: 048
     Dates: start: 20110901, end: 20110901

REACTIONS (5)
  - HYPERTENSIVE CRISIS [None]
  - ALLERGIC OEDEMA [None]
  - RESPIRATORY FAILURE [None]
  - PRURITUS [None]
  - RASH [None]
